FAERS Safety Report 7941258-1 (Version None)
Quarter: 2011Q4

REPORT INFORMATION
  Report Type: 
  Country: None (occurrence: None)
  Receive Date: 20111122
  Receipt Date: 20111122
  Transmission Date: 20120403
  Serious: No
  Sender: FDA-Public Use
  Company Number: None

PATIENT
  Age: 14 Year
  Sex: Male

DRUGS (1)
  1. BUPROPION HCL [Suspect]
     Dosage: 150 MG Q DAILY ORAL
     Route: 048
     Dates: start: 20110101, end: 20110301

REACTIONS (3)
  - NAUSEA [None]
  - DRUG INEFFECTIVE [None]
  - AGGRESSION [None]
